FAERS Safety Report 5568282-0 (Version None)
Quarter: 2007Q4

REPORT INFORMATION
  Report Type: 
  Country: None (occurrence: None)
  Receive Date: 20071220
  Receipt Date: 20071212
  Transmission Date: 20080405
  Serious: Yes (Hospitalization)
  Sender: FDA-Public Use
  Company Number: JP-JNJFOC-20071204251

PATIENT
  Age: 53 Year
  Sex: Female

DRUGS (5)
  1. REMICADE [Suspect]
     Indication: RHEUMATOID ARTHRITIS
     Route: 042
  2. METHOTREXATE [Suspect]
     Dosage: RESTARTED ON DISEASE DAY 18
     Route: 048
  3. METHOTREXATE [Suspect]
     Indication: RHEUMATOID ARTHRITIS
     Route: 048
  4. KANZO [Suspect]
     Indication: DRUG USE FOR UNKNOWN INDICATION
     Dosage: REPLACED ON DISEASE DAY 28
  5. CLARITHROMYCIN [Suspect]
     Indication: INFECTION PROPHYLAXIS
     Dosage: REPLACED ON DISEASE DAY 22
     Route: 048

REACTIONS (5)
  - FEBRILE NEUTROPENIA [None]
  - HYPOKALAEMIA [None]
  - OEDEMA PERIPHERAL [None]
  - PNEUMONIA [None]
  - PSEUDOALDOSTERONISM [None]
